FAERS Safety Report 18418410 (Version 2)
Quarter: 2020Q4

REPORT INFORMATION
  Report Type: Report from Study
  Country: US (occurrence: US)
  Receive Date: 20201023
  Receipt Date: 20201102
  Transmission Date: 20210114
  Serious: Yes (Hospitalization)
  Sender: FDA-Public Use
  Company Number: US-ACADIA PHARMACEUTICALS INC.-ACA-2020-PIM-003179

PATIENT
  Sex: Male

DRUGS (3)
  1. NUPLAZID [Suspect]
     Active Substance: PIMAVANSERIN TARTRATE
     Indication: DELUSION
  2. NUPLAZID [Suspect]
     Active Substance: PIMAVANSERIN TARTRATE
     Indication: PARKINSON^S DISEASE PSYCHOSIS
     Dosage: 34 MILLIGRAM, QD
     Route: 048
     Dates: end: 202008
  3. NUPLAZID [Suspect]
     Active Substance: PIMAVANSERIN TARTRATE
     Indication: HALLUCINATION
     Dosage: 34 MILLIGRAM, QD
     Route: 048
     Dates: start: 202009

REACTIONS (10)
  - Confusional state [Unknown]
  - Tremor [Unknown]
  - Cystitis [Unknown]
  - Gait inability [Unknown]
  - Insomnia [Unknown]
  - Product dose omission issue [Unknown]
  - Restlessness [Unknown]
  - Headache [Unknown]
  - Pyrexia [Unknown]
  - Hallucination [Unknown]

NARRATIVE: CASE EVENT DATE: 2020
